FAERS Safety Report 13066121 (Version 1)
Quarter: 2016Q4

REPORT INFORMATION
  Report Type: Report from Study
  Country: US (occurrence: US)
  Receive Date: 20161227
  Receipt Date: 20161227
  Transmission Date: 20170207
  Serious: Yes (Death, Other)
  Sender: FDA-Public Use
  Company Number: PHHY2016US178185

PATIENT
  Age: 18 Year
  Sex: Female
  Weight: 43.3 kg

DRUGS (24)
  1. VENTOLIN HFA [Concomitant]
     Active Substance: ALBUTEROL SULFATE
     Indication: DYSPNOEA
     Dosage: 2 DF (108 (90 BASE)), EVERY 6 HOURS  AS NEEDED
     Route: 055
     Dates: start: 20160509
  2. TOBI PODHALER [Suspect]
     Active Substance: TOBRAMYCIN
     Indication: PSEUDOMONAS INFECTION
     Dosage: 300 MG, BID (28 DAYS ON, 28 DAYS OFF)
     Route: 055
     Dates: start: 20160601, end: 20160606
  3. ZENPEP [Concomitant]
     Active Substance: PANCRELIPASE AMYLASE\PANCRELIPASE LIPASE\PANCRELIPASE PROTEASE
     Indication: PRODUCT USED FOR UNKNOWN INDICATION
     Dosage: 3 CAPSULE WITH MEALS AND 2 WITH SNACKS
     Route: 065
     Dates: start: 20161019
  4. PHYTONADIONE. [Concomitant]
     Active Substance: PHYTONADIONE
     Indication: PRODUCT USED FOR UNKNOWN INDICATION
     Dosage: 1 DF, QD
     Route: 048
     Dates: start: 20161207
  5. IBUPROFEN. [Concomitant]
     Active Substance: IBUPROFEN
     Indication: ARTHRALGIA
     Dosage: 2 DF, Q12H
     Route: 048
     Dates: start: 20160509
  6. PREDNISONE. [Concomitant]
     Active Substance: PREDNISONE
     Indication: PRODUCT USED FOR UNKNOWN INDICATION
     Dosage: 12.5 MG MORNING AND 5 MG AT BEDTIME DAILY
     Route: 048
  7. PROBIOTIC [Concomitant]
     Active Substance: PROBIOTICS NOS
     Indication: PRODUCT USED FOR UNKNOWN INDICATION
     Dosage: UNK UNK, QD
     Route: 048
  8. NOVOLOG [Concomitant]
     Active Substance: INSULIN ASPART
     Indication: PRODUCT USED FOR UNKNOWN INDICATION
     Dosage: 50 U, QD (GIVE 4 UNITS WITH EACH MEAL PLUS CORRECTIONAL SCALE)
     Route: 065
     Dates: start: 20160531
  9. LEVEMIR [Concomitant]
     Active Substance: INSULIN DETEMIR
     Indication: PRODUCT USED FOR UNKNOWN INDICATION
     Dosage: 7 U, UNK
     Route: 058
     Dates: start: 20160531
  10. BACTRIM [Concomitant]
     Active Substance: SULFAMETHOXAZOLE\TRIMETHOPRIM
     Indication: PRODUCT USED FOR UNKNOWN INDICATION
     Dosage: 1 DF, Q12H (80-160 MG)
     Route: 048
     Dates: start: 20160810
  11. TOBI PODHALER [Suspect]
     Active Substance: TOBRAMYCIN
     Indication: CYSTIC FIBROSIS
     Dosage: 300 MG, BID (28 DAYS ON, 28 DAYS OFF)
     Route: 055
     Dates: start: 2005
  12. IPRATROPIUM/ALBUTEROL [Concomitant]
     Active Substance: ALBUTEROL\IPRATROPIUM
     Indication: DYSPNOEA
     Dosage: 3 ML, Q6H AS NEEDED
     Route: 065
     Dates: start: 20160509
  13. PREVACID [Concomitant]
     Active Substance: LANSOPRAZOLE
     Indication: PRODUCT USED FOR UNKNOWN INDICATION
     Dosage: 1 DF, Q12H
     Route: 048
     Dates: start: 20151020
  14. MULTI VITAMIN + MINERAL [Concomitant]
     Active Substance: MINERALS\VITAMINS
     Indication: PRODUCT USED FOR UNKNOWN INDICATION
     Dosage: 2 DF, QD
     Route: 048
  15. DORNASE ALFA [Concomitant]
     Active Substance: DORNASE ALFA
     Indication: PRODUCT USED FOR UNKNOWN INDICATION
     Dosage: 2.5 ML, BID
     Route: 055
     Dates: start: 20161205
  16. ADVAIR DISKUS [Concomitant]
     Active Substance: FLUTICASONE PROPIONATE\SALMETEROL XINAFOATE
     Indication: PRODUCT USED FOR UNKNOWN INDICATION
     Dosage: 1 DF (250-50 MCG), Q12H
     Route: 055
     Dates: start: 20160914
  17. MONTELUKAST [Concomitant]
     Active Substance: MONTELUKAST SODIUM
     Indication: PRODUCT USED FOR UNKNOWN INDICATION
     Dosage: 1 DF, QD (BEDTIME)
     Route: 048
     Dates: start: 20161104
  18. ALBUTEROL. [Concomitant]
     Active Substance: ALBUTEROL
     Indication: PRODUCT USED FOR UNKNOWN INDICATION
     Dosage: 5 MG/ML, Q8H (AS NEEDED ALSO)-NEBULIZER
     Route: 065
     Dates: start: 20160509
  19. AMIKACIN [Concomitant]
     Active Substance: AMIKACIN
     Indication: PRODUCT USED FOR UNKNOWN INDICATION
     Dosage: 900 MG, QD (500 MG/2ML), 7 VIAL
     Route: 042
     Dates: start: 20161121
  20. NPH INSULIN [Concomitant]
     Active Substance: INSULIN BEEF
     Indication: PRODUCT USED FOR UNKNOWN INDICATION
     Dosage: 5 U, QD (BEDTIME)
     Route: 058
  21. ONDANSETRON [Concomitant]
     Active Substance: ONDANSETRON
     Indication: NAUSEA
     Dosage: 1 DF, Q8H
     Route: 048
     Dates: start: 20160914
  22. ALLEGRA ALLERGY [Concomitant]
     Active Substance: FEXOFENADINE HYDROCHLORIDE
     Indication: PRODUCT USED FOR UNKNOWN INDICATION
     Dosage: 1 DF, QD
     Route: 048
     Dates: start: 20160509
  23. GABAPENTIN. [Concomitant]
     Active Substance: GABAPENTIN
     Indication: PRODUCT USED FOR UNKNOWN INDICATION
     Dosage: 1 DF, TID
     Route: 048
     Dates: start: 20160811
  24. SODIUM CHLORIDE. [Concomitant]
     Active Substance: SODIUM CHLORIDE
     Indication: PRODUCT USED FOR UNKNOWN INDICATION
     Dosage: 50 MG, QD WITH CASPOFUNGIN 50 MG SOLR
     Route: 042

REACTIONS (13)
  - Brain oedema [Fatal]
  - Malnutrition [Unknown]
  - Bronchiectasis [Unknown]
  - Diabetes mellitus [Unknown]
  - Pulmonary thrombosis [Unknown]
  - Pancreatic insufficiency [Unknown]
  - Brain death [Fatal]
  - Hypotension [Unknown]
  - Haemodynamic test abnormal [Unknown]
  - Feeding disorder [Unknown]
  - Cardiac arrest [Fatal]
  - Meconium ileus [Recovered/Resolved]
  - Bronchopulmonary aspergillosis allergic [Unknown]

NARRATIVE: CASE EVENT DATE: 20150721
